FAERS Safety Report 7482524-6 (Version None)
Quarter: 2011Q2

REPORT INFORMATION
  Report Type: 
  Country: None (occurrence: None)
  Receive Date: 20110516
  Receipt Date: 20110105
  Transmission Date: 20111010
  Serious: Yes (Hospitalization)
  Sender: FDA-Public Use
  Company Number: US-BAYER-201028505NA

PATIENT
  Age: 20 Year
  Sex: Female
  Weight: 67.574 kg

DRUGS (3)
  1. YAZ [Suspect]
     Indication: CONTRACEPTION
     Dosage: UNK UNK, UNK
     Route: 048
     Dates: start: 20080611, end: 20090129
  2. AMOXICILLIN [Concomitant]
  3. PROGESTERONE [Concomitant]
     Indication: AMENORRHOEA

REACTIONS (7)
  - CHOLECYSTITIS CHRONIC [None]
  - ABDOMINAL PAIN UPPER [None]
  - VOMITING [None]
  - BILIARY COLIC [None]
  - BILIARY DYSKINESIA [None]
  - ABDOMINAL PAIN [None]
  - NAUSEA [None]
